FAERS Safety Report 13760373 (Version 2)
Quarter: 2017Q4

REPORT INFORMATION
  Report Type: Spontaneous
  Country: US (occurrence: US)
  Receive Date: 20170717
  Receipt Date: 20171031
  Transmission Date: 20180320
  Serious: Yes (Hospitalization, Other)
  Sender: FDA-Public Use
  Company Number: US-BRISTOL-MYERS SQUIBB COMPANY-BMS-2017-063709

PATIENT
  Age: 15 Year
  Sex: Female

DRUGS (22)
  1. OLANZAPINE. [Suspect]
     Active Substance: OLANZAPINE
     Indication: INTELLECTUAL DISABILITY
     Route: 065
  2. ZIPRASIDONE. [Suspect]
     Active Substance: ZIPRASIDONE
     Indication: AUTISM SPECTRUM DISORDER
     Route: 065
  3. CHLORPROMAZINE. [Suspect]
     Active Substance: CHLORPROMAZINE
     Indication: AUTISM SPECTRUM DISORDER
     Route: 065
  4. LITHIUM. [Suspect]
     Active Substance: LITHIUM
     Indication: INTELLECTUAL DISABILITY
     Route: 065
  5. BENZTROPINE [Suspect]
     Active Substance: BENZTROPINE
     Indication: INTELLECTUAL DISABILITY
     Route: 065
  6. HALOPERIDOL. [Suspect]
     Active Substance: HALOPERIDOL
     Indication: INTELLECTUAL DISABILITY
     Route: 065
  7. HALOPERIDOL. [Suspect]
     Active Substance: HALOPERIDOL
     Indication: AUTISM SPECTRUM DISORDER
     Route: 065
  8. CHLORPROMAZINE. [Suspect]
     Active Substance: CHLORPROMAZINE
     Indication: INTELLECTUAL DISABILITY
     Route: 065
  9. QUETIAPINE. [Suspect]
     Active Substance: QUETIAPINE
     Indication: AUTISM SPECTRUM DISORDER
     Route: 065
  10. ARIPIPRAZOLE. [Suspect]
     Active Substance: ARIPIPRAZOLE
     Indication: INTELLECTUAL DISABILITY
     Route: 065
  11. LITHIUM. [Suspect]
     Active Substance: LITHIUM
     Indication: AUTISM SPECTRUM DISORDER
     Route: 065
  12. GUANFACINA [Suspect]
     Active Substance: GUANFACINE
     Indication: INTELLECTUAL DISABILITY
     Route: 065
  13. BENZTROPINE [Suspect]
     Active Substance: BENZTROPINE
     Indication: AUTISM SPECTRUM DISORDER
     Route: 065
  14. OLANZAPINE. [Suspect]
     Active Substance: OLANZAPINE
     Indication: AUTISM SPECTRUM DISORDER
     Route: 065
  15. CLOZAPINE. [Suspect]
     Active Substance: CLOZAPINE
     Indication: AUTISM SPECTRUM DISORDER
     Route: 065
  16. LORAZEPAM. [Suspect]
     Active Substance: LORAZEPAM
     Indication: INTELLECTUAL DISABILITY
     Dosage: 1 DF, QD
     Route: 065
  17. ZIPRASIDONE. [Suspect]
     Active Substance: ZIPRASIDONE
     Indication: INTELLECTUAL DISABILITY
     Route: 065
  18. QUETIAPINE. [Suspect]
     Active Substance: QUETIAPINE
     Indication: INTELLECTUAL DISABILITY
     Route: 065
  19. ARIPIPRAZOLE. [Suspect]
     Active Substance: ARIPIPRAZOLE
     Indication: AUTISM SPECTRUM DISORDER
     Route: 065
  20. LORAZEPAM. [Suspect]
     Active Substance: LORAZEPAM
     Indication: AUTISM SPECTRUM DISORDER
     Route: 065
  21. GUANFACINA [Suspect]
     Active Substance: GUANFACINE
     Indication: AUTISM SPECTRUM DISORDER
     Route: 065
  22. CLOZAPINE. [Suspect]
     Active Substance: CLOZAPINE
     Indication: INTELLECTUAL DISABILITY
     Route: 065

REACTIONS (3)
  - Neuroleptic malignant syndrome [Unknown]
  - Catatonia [Unknown]
  - Electroconvulsive therapy [Unknown]
